FAERS Safety Report 7234304-4 (Version None)
Quarter: 2011Q1

REPORT INFORMATION
  Report Type: 
  Country: None (occurrence: None)
  Receive Date: 20110119
  Receipt Date: 20110107
  Transmission Date: 20110831
  Serious: No
  Sender: FDA-Public Use
  Company Number: US-B.I. PHARMACEUTICALS,INC./RIDGEFIELD-2011-BP-00848BP

PATIENT
  Age: 88 Year
  Sex: Female

DRUGS (8)
  1. DIGOXIN [Concomitant]
     Indication: CARDIAC DISORDER
     Route: 048
  2. ALLOPURINOL [Concomitant]
     Indication: GASTROOESOPHAGEAL REFLUX DISEASE
     Route: 048
     Dates: start: 20080101
  3. MUCINEX [Concomitant]
     Indication: INCREASED UPPER AIRWAY SECRETION
     Route: 048
     Dates: start: 20100101
  4. PRADAXA [Suspect]
     Indication: ATRIAL FIBRILLATION
     Dosage: 300 MG
     Route: 048
     Dates: start: 20110104
  5. FUROSEMIDE [Concomitant]
     Indication: CARDIAC DISORDER
     Dosage: 160 MG
     Route: 048
  6. OMEPRAZOLE [Concomitant]
     Indication: GASTROOESOPHAGEAL REFLUX DISEASE
     Route: 048
     Dates: start: 20080101
  7. FUROSEMIDE [Concomitant]
     Indication: LYMPHOMA
  8. TYLENOL [Concomitant]
     Indication: ARTHRITIS
     Route: 048
     Dates: start: 20000101

REACTIONS (4)
  - ABDOMINAL PAIN UPPER [None]
  - ABDOMINAL DISTENSION [None]
  - CONTUSION [None]
  - FLATULENCE [None]
